FAERS Safety Report 7474302-9 (Version None)
Quarter: 2011Q2

REPORT INFORMATION
  Report Type: 
  Country: None (occurrence: None)
  Receive Date: 20110511
  Receipt Date: 20110425
  Transmission Date: 20111010
  Serious: Yes (Death, Hospitalization)
  Sender: FDA-Public Use
  Company Number: JP-AMGEN-JPNCT2010007752

PATIENT
  Age: 64 Year
  Sex: Male
  Weight: 48 kg

DRUGS (11)
  1. IRINOTECAN HCL [Suspect]
     Indication: COLORECTAL CANCER
     Route: 041
     Dates: start: 20100827
  2. PRIMPERAN TAB [Concomitant]
     Dosage: UNK
     Route: 048
  3. GRANISETRON HCL [Concomitant]
     Dosage: UNK
     Route: 042
  4. VECTIBIX [Suspect]
     Indication: COLORECTAL CANCER
     Dosage: 6 MG/KG, Q2WK
     Route: 041
     Dates: start: 20100827, end: 20101126
  5. LEUCON [Concomitant]
     Dosage: UNK
     Route: 048
  6. ANTIHISTAMINES [Concomitant]
     Indication: PROPHYLAXIS
     Dosage: UNK
  7. DECADRON [Concomitant]
     Dosage: UNK
     Route: 042
  8. FENTOS TAPE [Concomitant]
     Dosage: UNK
     Route: 062
  9. OXINORM [Concomitant]
     Dosage: UNK
     Route: 048
  10. ALL OTHER THERAPEUTIC PRODUCTS [Concomitant]
     Dosage: UNK
     Route: 049
  11. MUCOSTA [Concomitant]
     Dosage: UNK
     Route: 048

REACTIONS (3)
  - COLORECTAL CANCER [None]
  - DERMATITIS ACNEIFORM [None]
  - FEBRILE NEUTROPENIA [None]
